FAERS Safety Report 17352002 (Version 1)
Quarter: 2020Q1

REPORT INFORMATION
  Report Type: Spontaneous
  Country: US (occurrence: US)
  Receive Date: 20200130
  Receipt Date: 20200130
  Transmission Date: 20200409
  Serious: Yes (Hospitalization)
  Sender: FDA-Public Use
  Company Number: US-JNJFOC-20200141004

PATIENT
  Age: 59 Year
  Sex: Male
  Weight: 90.8 kg

DRUGS (13)
  1. ASPRIN [Concomitant]
     Active Substance: ASPIRIN
  2. LISINOPRIL. [Concomitant]
     Active Substance: LISINOPRIL
     Indication: BLOOD PRESSURE MEASUREMENT
     Dates: start: 201811
  3. METOPROLOL TARTRATE. [Concomitant]
     Active Substance: METOPROLOL TARTRATE
     Indication: MYOCARDIAL INFARCTION
     Dates: start: 201811
  4. NITROGLYCERIN. [Concomitant]
     Active Substance: NITROGLYCERIN
     Indication: MYOCARDIAL INFARCTION
     Dosage: AS REQUIRED. HAVEN^T TAKEN YET.
     Dates: start: 201811
  5. ALLEGRA [Concomitant]
     Active Substance: FEXOFENADINE HYDROCHLORIDE
     Indication: CHRONIC SINUSITIS
  6. FLONASE [Concomitant]
     Active Substance: FLUTICASONE PROPIONATE
     Indication: CHRONIC SINUSITIS
  7. BRILINTA [Concomitant]
     Active Substance: TICAGRELOR
     Indication: ANTICOAGULANT THERAPY
     Dates: start: 201811
  8. ALLEGRA [Concomitant]
     Active Substance: FEXOFENADINE HYDROCHLORIDE
     Indication: MULTIPLE ALLERGIES
     Dates: start: 2016
  9. ZETIA [Concomitant]
     Active Substance: EZETIMIBE
     Indication: BLOOD CHOLESTEROL INCREASED
     Dates: start: 201811
  10. SIMPONI ARIA [Suspect]
     Active Substance: GOLIMUMAB
     Indication: PSORIATIC ARTHROPATHY
     Route: 042
     Dates: start: 201801
  11. FISH OIL [Concomitant]
     Active Substance: FISH OIL
  12. VITAMIN D3 [Concomitant]
     Active Substance: CHOLECALCIFEROL
  13. FLONASE [Concomitant]
     Active Substance: FLUTICASONE PROPIONATE
     Indication: MULTIPLE ALLERGIES
     Route: 045
     Dates: start: 2016

REACTIONS (1)
  - Acute myocardial infarction [Recovered/Resolved]

NARRATIVE: CASE EVENT DATE: 20181122
